FAERS Safety Report 7057586-0 (Version None)
Quarter: 2010Q4

REPORT INFORMATION
  Report Type: 
  Country: None (occurrence: None)
  Receive Date: 20101022
  Receipt Date: 20101011
  Transmission Date: 20110411
  Serious: Yes (Death)
  Sender: FDA-Public Use
  Company Number: NL-ACTELION-A-CH2010-40532

PATIENT
  Sex: Female
  Weight: 75 kg

DRUGS (7)
  1. TRACLEER [Suspect]
     Indication: PULMONARY ARTERIAL HYPERTENSION
     Dosage: 125 MG, BID
     Route: 048
     Dates: start: 20100724, end: 20101002
  2. TRACLEER [Suspect]
     Dosage: 62.5 MG, BID
     Route: 048
     Dates: start: 20100626, end: 20100723
  3. PREDNISONE TAB [Concomitant]
  4. FUROSEMIDE [Concomitant]
  5. SPIRONOLACTONE [Concomitant]
  6. ASCAL [Concomitant]
  7. NEXIUM [Concomitant]

REACTIONS (3)
  - CONDITION AGGRAVATED [None]
  - METASTASIS [None]
  - METASTATIC MALIGNANT MELANOMA [None]
